FAERS Safety Report 9632600 (Version 1)
Quarter: 2013Q4

REPORT INFORMATION
  Report Type: Report from Study
  Country: FR (occurrence: FR)
  Receive Date: 20131018
  Receipt Date: 20131018
  Transmission Date: 20140711
  Serious: Yes (Other)
  Sender: FDA-Public Use
  Company Number: FR-PFIZER INC-2013297900

PATIENT
  Sex: Female

DRUGS (2)
  1. FLUOROURACIL [Suspect]
     Indication: BREAST CANCER
     Dosage: 500 MG/M2/D (D1-D5), EVERY 3 WEEKS, 4 CYCLES
     Route: 042
  2. VINORELBINE [Suspect]
     Indication: BREAST CANCER
     Dosage: 25 MG/M2, ON DAYS 1 AND 6, EVERY 3 WEEKS, 4 CYCLES
     Route: 042

REACTIONS (2)
  - Skin toxicity [Unknown]
  - Febrile neutropenia [Unknown]
